FAERS Safety Report 23909363 (Version 1)
Quarter: 2024Q2

REPORT INFORMATION
  Report Type: Spontaneous
  Country: CH (occurrence: CH)
  Receive Date: 20240528
  Receipt Date: 20240528
  Transmission Date: 20240715
  Serious: Yes (Hospitalization)
  Sender: FDA-Public Use
  Company Number: None

PATIENT
  Age: 74 Year
  Sex: Male

DRUGS (6)
  1. ARAVA [Suspect]
     Active Substance: LEFLUNOMIDE
     Indication: Rheumatoid arthritis
     Dosage: 20 MG, QD (TAKEN FROM NOVEMBER 2019 TO JANUARY 2021, THEN INTERRUPTED DUE TO SARS-COV-2 INFECTION CO
     Route: 048
     Dates: start: 20220414, end: 20221012
  2. ASPIRIN [Concomitant]
     Active Substance: ASPIRIN
     Dosage: 100 MG, QD, CHRONIC THERAPY
     Route: 048
  3. PANTOZOL [Concomitant]
     Active Substance: PANTOPRAZOLE SODIUM
     Dosage: 20 MG, QD, CHRONIC THERAPY
     Route: 048
  4. ALENDRONAT SPIRIG [Concomitant]
     Dosage: 70 MG, QW, CHRONIC THERAPY
     Route: 048
  5. DUTASTERIDE\TAMSULOSIN [Concomitant]
     Active Substance: DUTASTERIDE\TAMSULOSIN
     Dosage: 1 DF, QD, CHRONIC THERAPY
     Route: 048
  6. GLYCOPYRRONIUM\INDACATEROL [Concomitant]
     Active Substance: GLYCOPYRRONIUM\INDACATEROL
     Dosage: 1 DF, QD, CHRONIC THERAPY
     Route: 055

REACTIONS (1)
  - Rheumatoid lung [Recovering/Resolving]

NARRATIVE: CASE EVENT DATE: 20220901
